FAERS Safety Report 13074555 (Version 1)
Quarter: 2016Q4

REPORT INFORMATION
  Report Type: Report from Study
  Country: US (occurrence: US)
  Receive Date: 20161230
  Receipt Date: 20161230
  Transmission Date: 20170207
  Serious: Yes (Other)
  Sender: FDA-Public Use
  Company Number: US-ROCHE-1871928

PATIENT

DRUGS (5)
  1. CAPECITABINE. [Suspect]
     Active Substance: CAPECITABINE
     Indication: COLORECTAL CANCER METASTATIC
     Route: 065
  2. LEUCOVORIN. [Suspect]
     Active Substance: LEUCOVORIN
     Indication: COLORECTAL CANCER METASTATIC
     Route: 065
  3. OXALIPLATIN. [Suspect]
     Active Substance: OXALIPLATIN
     Indication: COLORECTAL CANCER METASTATIC
     Route: 065
  4. BEVACIZUMAB [Suspect]
     Active Substance: BEVACIZUMAB
     Indication: COLORECTAL CANCER METASTATIC
     Route: 065
  5. 5-FU [Suspect]
     Active Substance: FLUOROURACIL
     Indication: COLORECTAL CANCER METASTATIC
     Route: 065

REACTIONS (19)
  - Mucosal inflammation [Unknown]
  - Palmar-plantar erythrodysaesthesia syndrome [Unknown]
  - Hypersensitivity [Unknown]
  - Nausea [Unknown]
  - Hypertension [Unknown]
  - Embolism [Unknown]
  - Ejection fraction decreased [Unknown]
  - Large intestinal obstruction [Unknown]
  - Fatigue [Unknown]
  - Anaemia [Unknown]
  - Hyperglycaemia [Unknown]
  - Dysaesthesia [Unknown]
  - Chronic kidney disease [Unknown]
  - Decreased appetite [Unknown]
  - Back pain [Unknown]
  - Peripheral sensory neuropathy [Unknown]
  - Fall [Unknown]
  - Hyponatraemia [Unknown]
  - Neutropenia [Unknown]
